FAERS Safety Report 17870946 (Version 1)
Quarter: 2020Q2

REPORT INFORMATION
  Report Type: Spontaneous
  Country: US (occurrence: US)
  Receive Date: 20200605
  Receipt Date: 20200605
  Transmission Date: 20200714
  Serious: Yes (Hospitalization)
  Sender: FDA-Public Use
  Company Number: None

PATIENT
  Sex: Female

DRUGS (6)
  1. TACROLIMUS 0.5MG [Suspect]
     Active Substance: TACROLIMUS
     Indication: HEART TRANSPLANT
     Route: 048
     Dates: start: 20190524
  2. TACROLIMUS, 1 MG [Suspect]
     Active Substance: TACROLIMUS
     Route: 048
     Dates: start: 20190212
  3. ACYCLOVIR. [Concomitant]
     Active Substance: ACYCLOVIR
  4. AMLODIPINE [Concomitant]
     Active Substance: AMLODIPINE BESYLATE
  5. DOXYCYCLINE. [Concomitant]
     Active Substance: DOXYCYCLINE
  6. ZORTRESS [Concomitant]
     Active Substance: EVEROLIMUS

REACTIONS (2)
  - Pneumonia [None]
  - Acute sinusitis [None]
